FAERS Safety Report 5876771-4 (Version None)
Quarter: 2008Q3

REPORT INFORMATION
  Report Type: 
  Country: None (occurrence: None)
  Receive Date: 20080910
  Receipt Date: 20080821
  Transmission Date: 20090109
  Serious: Yes (Disabling)
  Sender: FDA-Public Use
  Company Number: GB-B.I. PHARMACEUTICALS,INC./RIDGEFIELD-2008-BP-13710YA

PATIENT
  Age: 77 Year
  Sex: Male

DRUGS (9)
  1. TAMSULOSIN HCL [Suspect]
     Indication: BENIGN PROSTATIC HYPERPLASIA
     Dosage: ,4MG
     Route: 048
     Dates: start: 20050728, end: 20070315
  2. ASPIRIN [Concomitant]
     Dates: start: 19980528
  3. ATORVASTATIN CALCIUM [Concomitant]
     Dates: start: 20040726
  4. DIAZEPAM [Concomitant]
     Dates: start: 20000724
  5. FLUANXOL [Concomitant]
     Dates: start: 19980727
  6. LACTULOSE [Concomitant]
  7. MEBEVERINE HYDROCHLORIDE [Concomitant]
     Dates: start: 19991223
  8. ACETAMINOPHEN [Concomitant]
     Dates: start: 20000918
  9. PROCHLORPERAZINE [Concomitant]

REACTIONS (7)
  - CONSTIPATION [None]
  - DEPRESSED MOOD [None]
  - DIARRHOEA [None]
  - DIZZINESS [None]
  - ERECTILE DYSFUNCTION [None]
  - FRUSTRATION [None]
  - NASAL CONGESTION [None]
